FAERS Safety Report 14871656 (Version 3)
Quarter: 2018Q3

REPORT INFORMATION
  Report Type: Spontaneous
  Country: AT (occurrence: AT)
  Receive Date: 20180509
  Receipt Date: 20180810
  Transmission Date: 20181010
  Serious: Yes (Other)
  Sender: FDA-Public Use
  Company Number: AT-INCYTE CORPORATION-2018IN004488

PATIENT

DRUGS (5)
  1. JAKAVI [Suspect]
     Active Substance: RUXOLITINIB
     Indication: HODGKIN^S DISEASE
     Dosage: 10 MG, BID
     Route: 065
  2. PACLITAXEL. [Suspect]
     Active Substance: PACLITAXEL
     Indication: HODGKIN^S DISEASE
     Dosage: UNK
     Route: 065
  3. PIXANTRONE [Suspect]
     Active Substance: PIXANTRONE
     Indication: HODGKIN^S DISEASE
     Dosage: UNK
     Route: 065
  4. G?CSF [Suspect]
     Active Substance: GRANULOCYTE COLONY-STIMULATING FACTOR NOS
     Indication: HODGKIN^S DISEASE
     Dosage: UNK
     Route: 065
  5. JAKAVI [Suspect]
     Active Substance: RUXOLITINIB
     Dosage: 25 MG, BID
     Route: 065

REACTIONS (5)
  - Sepsis [Recovering/Resolving]
  - Lymphadenopathy [Recovered/Resolved]
  - Recurrent cancer [Unknown]
  - Hodgkin^s disease [Unknown]
  - Product use in unapproved indication [Unknown]

NARRATIVE: CASE EVENT DATE: 201601
